FAERS Safety Report 7967073-0 (Version None)
Quarter: 2011Q4

REPORT INFORMATION
  Report Type: 
  Country: None (occurrence: None)
  Receive Date: 20111207
  Receipt Date: 20111207
  Transmission Date: 20120403
  Serious: Yes (Hospitalization)
  Sender: FDA-Public Use
  Company Number: None

PATIENT
  Sex: Female
  Weight: 27.44 kg

DRUGS (4)
  1. LEUCOVORIN CALCIUM [Suspect]
     Dosage: 10 MG
  2. VINCRISTINE SULFATE [Suspect]
     Dosage: 6 MG
  3. SULFAMETHOXAZOLE AND TRIMETHOPRIM [Concomitant]
  4. METHOTREXATE [Suspect]
     Dosage: 715 MG

REACTIONS (13)
  - DEHYDRATION [None]
  - WEIGHT DECREASED [None]
  - DIARRHOEA [None]
  - STEVENS-JOHNSON SYNDROME [None]
  - VOMITING [None]
  - HYPOKALAEMIA [None]
  - PANCYTOPENIA [None]
  - METABOLIC ACIDOSIS [None]
  - ACUTE RESPIRATORY DISTRESS SYNDROME [None]
  - TOXIC EPIDERMAL NECROLYSIS [None]
  - MULTI-ORGAN FAILURE [None]
  - HYPOTENSION [None]
  - BLOOD CREATININE INCREASED [None]
